FAERS Safety Report 8623320-3 (Version None)
Quarter: 2012Q3

REPORT INFORMATION
  Report Type: 
  Country: None (occurrence: None)
  Receive Date: 20120824
  Receipt Date: 20120824
  Transmission Date: 20120928
  Serious: Yes (Death)
  Sender: FDA-Public Use
  Company Number: None

PATIENT
  Sex: Male
  Weight: 83.9154 kg

DRUGS (1)
  1. XGEVA [Suspect]
     Indication: METASTASES TO BONE

REACTIONS (2)
  - HYPOCALCAEMIA [None]
  - NO THERAPEUTIC RESPONSE [None]
